FAERS Safety Report 13181778 (Version 1)
Quarter: 2017Q1

REPORT INFORMATION
  Report Type: Spontaneous
  Country: US (occurrence: US)
  Receive Date: 20170202
  Receipt Date: 20170202
  Transmission Date: 20170428
  Serious: No
  Sender: FDA-Public Use
  Company Number: None

PATIENT
  Age: 74 Year
  Sex: Male

DRUGS (4)
  1. ZYTIGA [Suspect]
     Active Substance: ABIRATERONE ACETATE
     Indication: ESSENTIAL HYPERTENSION
     Dosage: 4 TABLETS QD ORAL
     Route: 048
     Dates: start: 20160816, end: 20170112
  2. ZYTIGA [Suspect]
     Active Substance: ABIRATERONE ACETATE
     Indication: NEOPLASM MALIGNANT
     Dosage: 4 TABLETS QD ORAL
     Route: 048
     Dates: start: 20160816, end: 20170112
  3. ZYTIGA [Suspect]
     Active Substance: ABIRATERONE ACETATE
     Indication: TYPE 2 DIABETES MELLITUS
     Dosage: 4 TABLETS QD ORAL
     Route: 048
     Dates: start: 20160816, end: 20170112
  4. ZYTIGA [Suspect]
     Active Substance: ABIRATERONE ACETATE
     Indication: DYSLIPIDAEMIA
     Dosage: 4 TABLETS QD ORAL
     Route: 048
     Dates: start: 20160816, end: 20170112

REACTIONS (2)
  - Blood glucose increased [None]
  - Therapy cessation [None]

NARRATIVE: CASE EVENT DATE: 20170112
